FAERS Safety Report 8974331 (Version 2)
Quarter: 2012Q4

REPORT INFORMATION
  Report Type: 
  Country: CN (occurrence: CN)
  Receive Date: 20121219
  Receipt Date: 20121226
  Transmission Date: 20130627
  Serious: Yes (Other)
  Sender: FDA-Public Use
  Company Number: CN-009507513-1212CHN007462

PATIENT
  Age: 27 Year
  Sex: Male
  Weight: 77 kg

DRUGS (1)
  1. CLARITYNE [Suspect]
     Indication: RHINITIS ALLERGIC
     Dosage: 1 specify units , qd
     Route: 048
     Dates: start: 20100814, end: 20100814

REACTIONS (3)
  - Vomiting [Recovered/Resolved]
  - Nausea [Recovered/Resolved]
  - Papule [Recovered/Resolved]
